FAERS Safety Report 6438145-7 (Version None)
Quarter: 2009Q4

REPORT INFORMATION
  Report Type: 
  Country: None (occurrence: None)
  Receive Date: 20091109
  Receipt Date: 20090603
  Transmission Date: 20100525
  Serious: Yes (Other)
  Sender: FDA-Public Use
  Company Number: 09-76/E-09-031

PATIENT
  Sex: Female

DRUGS (1)
  1. CARISOPRODOL [Suspect]
     Indication: PAIN

REACTIONS (1)
  - DRUG INEFFECTIVE [None]
